FAERS Safety Report 23131012 (Version 3)
Quarter: 2024Q2

REPORT INFORMATION
  Report Type: Spontaneous
  Country: US (occurrence: US)
  Receive Date: 20231031
  Receipt Date: 20240608
  Transmission Date: 20240716
  Serious: No
  Sender: FDA-Public Use
  Company Number: US-SA-SAC20231024000741

PATIENT
  Age: 72 Year
  Sex: Male

DRUGS (1)
  1. DUPIXENT [Suspect]
     Active Substance: DUPILUMAB
     Indication: Asthma
     Dosage: 300 MG, QOW
     Route: 058
     Dates: start: 20230314

REACTIONS (5)
  - Malaise [Unknown]
  - Sinus disorder [Unknown]
  - Injection site discolouration [Unknown]
  - Injection site pruritus [Unknown]
  - Injection site swelling [Unknown]

NARRATIVE: CASE EVENT DATE: 20230101
